FAERS Safety Report 5558476-2 (Version None)
Quarter: 2007Q4

REPORT INFORMATION
  Report Type: 
  Country: None (occurrence: None)
  Receive Date: 20071214
  Receipt Date: 20070910
  Transmission Date: 20080405
  Serious: No
  Sender: FDA-Public Use
  Company Number: US-ABBOTT-07P-163-0378875-00

PATIENT
  Sex: Female
  Weight: 58.566 kg

DRUGS (9)
  1. HUMIRA [Suspect]
     Indication: RHEUMATOID ARTHRITIS
     Route: 058
     Dates: start: 20070701, end: 20070701
  2. HUMIRA [Suspect]
     Route: 058
     Dates: start: 20070807
  3. SERTRALINE [Concomitant]
     Indication: DRUG USE FOR UNKNOWN INDICATION
  4. LEVOTHYROXINE SODIUM [Concomitant]
     Indication: HYPOTHYROIDISM
     Route: 048
     Dates: start: 19780101
  5. LANTUS [Concomitant]
     Indication: DIABETES MELLITUS
  6. INSULIN [Concomitant]
     Indication: DIABETES MELLITUS
  7. LORAZEPAM [Concomitant]
     Indication: ANXIETY
  8. HYDROCODONE BITARTRATE [Concomitant]
     Indication: PAIN
  9. METHOTREXATE [Concomitant]
     Indication: RHEUMATOID ARTHRITIS

REACTIONS (2)
  - RHEUMATOID ARTHRITIS [None]
  - STAPHYLOCOCCAL INFECTION [None]
